FAERS Safety Report 8558136-X (Version None)
Quarter: 2012Q3

REPORT INFORMATION
  Report Type: 
  Country: None (occurrence: None)
  Receive Date: 20120801
  Receipt Date: 20120725
  Transmission Date: 20120928
  Serious: Yes (Hospitalization, Disabling, Other)
  Sender: FDA-Public Use
  Company Number: US-009507513-1203USA03473

PATIENT

DRUGS (3)
  1. FOSAMAX [Suspect]
     Indication: BONE DENSITY ABNORMAL
     Dosage: 70 MG, QW
     Route: 048
     Dates: start: 20050426
  2. FOSAMAX [Suspect]
     Dosage: 70 MG, QW
     Route: 048
     Dates: start: 20080311
  3. FOSAMAX PLUS D [Suspect]
     Indication: BONE DENSITY ABNORMAL
     Route: 048

REACTIONS (11)
  - ANAEMIA OF MALIGNANT DISEASE [None]
  - FEMORAL NECK FRACTURE [None]
  - HYPOTHYROIDISM [None]
  - ARTHROPATHY [None]
  - LIMB ASYMMETRY [None]
  - ANXIETY [None]
  - SPINAL OSTEOARTHRITIS [None]
  - SPONDYLOLISTHESIS [None]
  - FALL [None]
  - ELECTROCARDIOGRAM CHANGE [None]
  - SCIATICA [None]
